FAERS Safety Report 4904985-6 (Version None)
Quarter: 2006Q1

REPORT INFORMATION
  Report Type: 
  Country: None (occurrence: None)
  Receive Date: 20060208
  Receipt Date: 20051101
  Transmission Date: 20060701
  Serious: No
  Sender: FDA-Public Use
  Company Number: US-GLAXOSMITHKLINE-A0580509A

PATIENT
  Age: 67 Year
  Sex: Female

DRUGS (8)
  1. PAROXETINE HCL [Suspect]
     Indication: DEPRESSION
     Dosage: 30MG PER DAY
     Route: 048
     Dates: start: 20050701, end: 20051101
  2. LEVOXYL [Concomitant]
  3. NASONEX [Concomitant]
  4. ALLEGRA [Concomitant]
  5. QUININE SULFATE [Concomitant]
  6. FOSAMAX [Concomitant]
  7. MOBIC [Concomitant]
  8. PAXIL [Concomitant]
     Indication: DEPRESSION
     Dosage: 30MG PER DAY
     Route: 048
     Dates: end: 20050701

REACTIONS (2)
  - DRUG INEFFECTIVE [None]
  - MOOD SWINGS [None]
